FAERS Safety Report 5475481-5 (Version None)
Quarter: 2007Q3

REPORT INFORMATION
  Report Type: 
  Country: None (occurrence: None)
  Receive Date: 20070914
  Receipt Date: 20070725
  Transmission Date: 20080115
  Serious: Yes (Other)
  Sender: FDA-Public Use
  Company Number: 39461

PATIENT
  Age: 58 Year
  Sex: Male
  Weight: 73 kg

DRUGS (2)
  1. CIPROFLOXACIN INJECTION [Suspect]
     Indication: ANTIBIOTIC PROPHYLAXIS
     Dosage: 400MG/IV/X1 DOSE
     Dates: start: 20070725
  2. CIPROFLOXACIN INJECTION [Suspect]

REACTIONS (3)
  - ERYTHEMA [None]
  - INJECTION SITE REACTION [None]
  - PRURITUS [None]
